FAERS Safety Report 6646894-0 (Version None)
Quarter: 2010Q1

REPORT INFORMATION
  Report Type: 
  Country: None (occurrence: None)
  Receive Date: 20100323
  Receipt Date: 20100315
  Transmission Date: 20100710
  Serious: Yes (Other)
  Sender: FDA-Public Use
  Company Number: US-AMGEN-KDC399795

PATIENT
  Sex: Female
  Weight: 69 kg

DRUGS (23)
  1. ENBREL [Suspect]
     Indication: RHEUMATOID ARTHRITIS
     Dates: start: 20091023
  2. MULTI-VITAMINS [Concomitant]
     Route: 048
     Dates: start: 20091020, end: 20091230
  3. SELENIUM [Concomitant]
     Route: 048
     Dates: start: 20091020, end: 20091119
  4. CALCIUM WITH VITAMIN D [Concomitant]
     Route: 048
     Dates: start: 20091020, end: 20091119
  5. COENZYME Q10 [Concomitant]
     Route: 048
     Dates: start: 20091020, end: 20091119
  6. WOBENZYM [Concomitant]
     Route: 048
     Dates: start: 20091020, end: 20091119
  7. FISH OIL [Concomitant]
     Route: 048
     Dates: start: 20091020, end: 20091119
  8. PYCNOGENOL [Concomitant]
     Route: 048
     Dates: start: 20091020, end: 20091119
  9. FOLIC ACID [Concomitant]
     Route: 048
     Dates: start: 20091020, end: 20091119
  10. SYNTHROID [Concomitant]
     Route: 048
     Dates: start: 20091020
  11. LOVENOX [Concomitant]
     Dates: start: 20091105
  12. PROGESTERONE [Concomitant]
     Dates: start: 20091105, end: 20100108
  13. DEXAMETHASONE [Concomitant]
     Route: 048
     Dates: start: 20091020, end: 20091107
  14. ESTRACE [Concomitant]
     Route: 048
     Dates: start: 20091105, end: 20091119
  15. VALIUM [Concomitant]
     Route: 048
     Dates: start: 20091107, end: 20091107
  16. PREDNISONE TAB [Concomitant]
     Route: 048
     Dates: start: 20091120, end: 20091217
  17. BABY ASPIRIN [Concomitant]
     Route: 048
     Dates: start: 20091020
  18. DOXYCYCLINE [Concomitant]
     Route: 048
     Dates: start: 20091024, end: 20091104
  19. FLAGYL [Concomitant]
     Route: 048
     Dates: start: 20091024, end: 20091104
  20. LUPRON [Concomitant]
     Dates: start: 20091020, end: 20091102
  21. CHORIONIC GONADOTROPIN [Concomitant]
     Dates: start: 20091024, end: 20091027
  22. UROFOLLITROPIN [Concomitant]
     Dates: start: 20091024, end: 20091102
  23. VIAGRA [Concomitant]
     Route: 061
     Dates: start: 20091024, end: 20091102

REACTIONS (1)
  - ABORTION SPONTANEOUS [None]
